FAERS Safety Report 13861311 (Version 2)
Quarter: 2017Q3

REPORT INFORMATION
  Report Type: Spontaneous
  Country: BR (occurrence: BR)
  Receive Date: 20170811
  Receipt Date: 20170825
  Transmission Date: 20171127
  Serious: Yes (Other)
  Sender: FDA-Public Use
  Company Number: BR-JNJFOC-20170808551

PATIENT

DRUGS (2)
  1. ADALIMUMAB [Suspect]
     Active Substance: ADALIMUMAB
     Indication: COLITIS ULCERATIVE
     Route: 065
  2. REMICADE [Suspect]
     Active Substance: INFLIXIMAB
     Indication: COLITIS ULCERATIVE
     Route: 042

REACTIONS (9)
  - Deep vein thrombosis [Unknown]
  - Autoimmune hepatitis [Unknown]
  - Colon dysplasia [Unknown]
  - Colitis ulcerative [Unknown]
  - Cholangitis sclerosing [Unknown]
  - Pyoderma gangrenosum [Unknown]
  - Erythema nodosum [Unknown]
  - Therapeutic response decreased [Unknown]
  - Colectomy total [Unknown]
